FAERS Safety Report 7239891-8 (Version None)
Quarter: 2011Q1

REPORT INFORMATION
  Report Type: 
  Country: None (occurrence: None)
  Receive Date: 20110123
  Receipt Date: 20110110
  Transmission Date: 20110831
  Serious: Yes (Hospitalization, Other)
  Sender: FDA-Public Use
  Company Number: US-BAYER-2011-003492

PATIENT
  Sex: Female

DRUGS (18)
  1. DIGOXIN [Concomitant]
  2. NOVOLOG [Concomitant]
  3. VITAMIN B12 [Concomitant]
  4. LISINOPRIL [Concomitant]
  5. MAGNESIUM [MAGNESIUM] [Concomitant]
  6. PLAVIX [Concomitant]
  7. NITROGLYCERIN [Concomitant]
  8. PROPOFOL [Concomitant]
  9. UNCODEABLE ^INVESTIGATIONAL DRUG^ [Suspect]
     Dosage: 41 MG, 1 WEEK
     Dates: start: 20091215, end: 20101204
  10. FOLIC ACID [Concomitant]
  11. GLYBURIDE [Concomitant]
  12. LASIX [Concomitant]
  13. LIDOCAINE HYDROCHLORIDE IN PLASTIC CONTAINER [Concomitant]
     Dosage: UNK
  14. ASPIRIN [Suspect]
     Dosage: 81 MG, QD
     Route: 048
  15. LANTUS [Concomitant]
  16. UNCODEABLE ^INVESTIGATIONAL DRUG^ [Suspect]
     Indication: THROMBOSIS PROPHYLAXIS
     Dosage: 2 DF, QD
     Route: 048
     Dates: start: 20091215, end: 20101204
  17. DILTIAZEM HCL [Concomitant]
  18. FISH OIL [Concomitant]

REACTIONS (7)
  - GASTRIC ULCER HAEMORRHAGE [None]
  - FAECES DISCOLOURED [None]
  - ANAEMIA [None]
  - ASTHENIA [None]
  - GASTRITIS [None]
  - RENAL FAILURE [None]
  - ABDOMINAL DISCOMFORT [None]
